FAERS Safety Report 24961943 (Version 1)
Quarter: 2025Q1

REPORT INFORMATION
  Report Type: Spontaneous
  Country: CN (occurrence: CN)
  Receive Date: 20250212
  Receipt Date: 20250212
  Transmission Date: 20250409
  Serious: Yes (Hospitalization, Other)
  Sender: BAYER HEALTHCARE PHARMACEUTICALS INC.
  Company Number: CN-BAYER-2025A019224

PATIENT
  Age: 25 Year
  Sex: Female
  Weight: 75 kg

DRUGS (2)
  1. YAZ [Suspect]
     Active Substance: DROSPIRENONE\ETHINYL ESTRADIOL
     Indication: Polycystic ovarian syndrome
     Dosage: 1 DF, QD
     Route: 048
     Dates: start: 20230101, end: 20250206
  2. EUTHYROX [Suspect]
     Active Substance: LEVOTHYROXINE SODIUM
     Indication: Thyroxine decreased
     Dosage: 75 ?G, QD
     Route: 048
     Dates: start: 20230701, end: 20250206

REACTIONS (11)
  - Ureterolithiasis [Recovering/Resolving]
  - Back pain [Recovered/Resolved]
  - Abdominal pain [Recovered/Resolved]
  - Pallor [None]
  - Restlessness [None]
  - Renal hydrocele [None]
  - Ureteric dilatation [None]
  - Respiratory rate increased [None]
  - Urinary occult blood positive [None]
  - Product prescribing issue [None]
  - Product use in unapproved indication [None]

NARRATIVE: CASE EVENT DATE: 20230101
